FAERS Safety Report 25985146 (Version 1)
Quarter: 2025Q4

REPORT INFORMATION
  Report Type: Spontaneous
  Country: US (occurrence: US)
  Receive Date: 20251031
  Receipt Date: 20251031
  Transmission Date: 20260117
  Serious: Yes (Hospitalization)
  Sender: MEDEXUS PHARMA
  Company Number: US-MEDEXUS PHARMA, INC.-2025MED00359

PATIENT
  Age: 74 Year
  Sex: Male

DRUGS (2)
  1. METHOTREXATE [Suspect]
     Active Substance: METHOTREXATE
     Indication: Arthritis
     Dosage: 20 MG, 1X/DAY (140 MG IN ONE WEEK, ORIGINALLY PRESCRIBED 20 MG WEEKLY)
     Route: 065
  2. HYDROXYCHLOROQUINE SULFATE [Concomitant]
     Active Substance: HYDROXYCHLOROQUINE SULFATE
     Indication: Arthritis
     Dosage: UNK UNK, 1X/DAY
     Route: 065

REACTIONS (14)
  - Cerebral infarction [Unknown]
  - Tachycardia [Recovering/Resolving]
  - Emphysema [Recovering/Resolving]
  - Pulmonary fibrosis [Recovering/Resolving]
  - None [Unknown]
  - Leukoencephalopathy [Recovering/Resolving]
  - Stomatitis [Recovering/Resolving]
  - Rash pustular [Recovering/Resolving]
  - Neutropenia [Unknown]
  - Leukopenia [Unknown]
  - Candida infection [Recovering/Resolving]
  - Accidental overdose [Recovered/Resolved]
  - Product dispensing error [Recovered/Resolved]
  - Toxicity to various agents [Recovered/Resolved]
